FAERS Safety Report 4312296-5 (Version None)
Quarter: 2004Q1

REPORT INFORMATION
  Report Type: 
  Country: None (occurrence: None)
  Receive Date: 20040305
  Receipt Date: 20031211
  Transmission Date: 20041129
  Serious: Yes (Life-Threatening, Hospitalization)
  Sender: FDA-Public Use
  Company Number: FR-GLAXOSMITHKLINE-B0317459A

PATIENT
  Age: 10 Year
  Sex: Female
  Weight: 30 kg

DRUGS (5)
  1. VENTOLIN [Suspect]
     Indication: ASTHMA
     Dosage: 3UNIT PER DAY
     Route: 055
     Dates: start: 20031029, end: 20031117
  2. CIFLOX [Suspect]
     Dosage: 250MG TWICE PER DAY
     Route: 048
     Dates: start: 20031029, end: 20031117
  3. ORELOX [Suspect]
     Dosage: 100MG TWICE PER DAY
     Route: 048
     Dates: start: 20031029, end: 20031117
  4. ACETAMINOPHEN [Suspect]
     Route: 048
     Dates: start: 20031029
  5. SOLUPRED [Concomitant]
     Route: 048
     Dates: start: 20031029

REACTIONS (21)
  - ANOREXIA [None]
  - ANTINUCLEAR ANTIBODY POSITIVE [None]
  - ARTHRALGIA [None]
  - CONJUNCTIVITIS [None]
  - DERMATITIS BULLOUS [None]
  - DNA ANTIBODY POSITIVE [None]
  - EOSINOPHILIA [None]
  - EYELID OEDEMA [None]
  - FACE OEDEMA [None]
  - FATIGUE [None]
  - HYPEREOSINOPHILIC SYNDROME [None]
  - LOCALISED OEDEMA [None]
  - MUCOSAL INFLAMMATION [None]
  - MUSCLE CRAMP [None]
  - PYREXIA [None]
  - RASH VESICULAR [None]
  - SKIN DEPIGMENTATION [None]
  - SKIN DESQUAMATION [None]
  - SKIN DISORDER [None]
  - SKIN HYPERPIGMENTATION [None]
  - STEVENS-JOHNSON SYNDROME [None]
